FAERS Safety Report 11504222 (Version 1)
Quarter: 2015Q3

REPORT INFORMATION
  Report Type: Spontaneous
  Country: US (occurrence: US)
  Receive Date: 20150914
  Receipt Date: 20150914
  Transmission Date: 20151125
  Serious: No
  Sender: FDA-Public Use
  Company Number: US-009507513-1508USA012648

PATIENT
  Age: 27 Year
  Sex: Female

DRUGS (2)
  1. PREDNISONE. [Concomitant]
     Active Substance: PREDNISONE
     Route: 048
  2. NEXPLANON [Suspect]
     Active Substance: ETONOGESTREL
     Indication: CONTRACEPTION
     Dosage: 1 ROD EVERY 3 YEARS
     Route: 059
     Dates: start: 2013, end: 20150811

REACTIONS (5)
  - Device breakage [Recovered/Resolved]
  - Device kink [Recovered/Resolved]
  - Retinal detachment [Unknown]
  - Headache [Unknown]
  - Mood altered [Unknown]

NARRATIVE: CASE EVENT DATE: 2013
